FAERS Safety Report 5125121-X (Version None)
Quarter: 2006Q4

REPORT INFORMATION
  Report Type: 
  Country: None (occurrence: None)
  Receive Date: 20061006
  Receipt Date: 20060922
  Transmission Date: 20070319
  Serious: Yes (Other)
  Sender: FDA-Public Use
  Company Number: 2006-227

PATIENT
  Age: 78 Year
  Sex: Female
  Weight: 46 kg

DRUGS (6)
  1. CITALOPRAM 20 MG [Suspect]
     Indication: DEPRESSION
     Dosage: TAKE 1 TABLET PER DAY
     Dates: start: 20060512
  2. CLOPIDOGREL [Concomitant]
  3. ACETAMINOPHEN W/ CODEINE [Concomitant]
  4. FERROUS SULFATE TAB [Concomitant]
  5. LANSOPRAZOLE [Concomitant]
  6. SALBUTAMOL [Concomitant]

REACTIONS (4)
  - GASTROINTESTINAL HAEMORRHAGE [None]
  - HAEMATEMESIS [None]
  - HAEMOGLOBIN DECREASED [None]
  - HYPOTENSION [None]
